FAERS Safety Report 16664365 (Version 3)
Quarter: 2019Q3

REPORT INFORMATION
  Report Type: Report from Study
  Country: US (occurrence: US)
  Receive Date: 20190802
  Receipt Date: 20190903
  Transmission Date: 20191004
  Serious: Yes (Death, Hospitalization, Other)
  Sender: FDA-Public Use
  Company Number: US-EXELIXIS-CABO-19022890

PATIENT
  Age: 79 Year
  Sex: Male

DRUGS (1)
  1. CABOMETYX [Suspect]
     Active Substance: CABOZANTINIB S-MALATE
     Indication: HEPATIC CANCER
     Dosage: 60 MG, QD (Q AM WITHOUT FOOD)
     Dates: start: 20190707, end: 20190715

REACTIONS (8)
  - Intra-abdominal fluid collection [Unknown]
  - Decreased appetite [Unknown]
  - Ammonia increased [Unknown]
  - Asthenia [Unknown]
  - Palmar-plantar erythrodysaesthesia syndrome [Unknown]
  - Death [Fatal]
  - Diarrhoea [Unknown]
  - Dehydration [Unknown]

NARRATIVE: CASE EVENT DATE: 201907
